FAERS Safety Report 5909422-0 (Version None)
Quarter: 2008Q4

REPORT INFORMATION
  Report Type: 
  Country: None (occurrence: None)
  Receive Date: 20081006
  Receipt Date: 20080924
  Transmission Date: 20090506
  Serious: Yes (Other)
  Sender: FDA-Public Use
  Company Number: US-PFIZER INC-2008081582

PATIENT
  Sex: Female
  Weight: 49 kg

DRUGS (2)
  1. CHANTIX [Suspect]
     Dates: start: 20080918, end: 20080922
  2. SYNTHROID [Concomitant]

REACTIONS (1)
  - HYPOACUSIS [None]
